FAERS Safety Report 6594460-8 (Version None)
Quarter: 2010Q1

REPORT INFORMATION
  Report Type: 
  Country: None (occurrence: None)
  Receive Date: 20100222
  Receipt Date: 20100210
  Transmission Date: 20100710
  Serious: Yes (Hospitalization)
  Sender: FDA-Public Use
  Company Number: US-PFIZER INC-2010015811

PATIENT
  Sex: Female
  Weight: 78.005 kg

DRUGS (44)
  1. IBUPROFEN [Suspect]
     Indication: OSTEOARTHRITIS
     Dosage: HIGH DOSE
     Route: 048
     Dates: start: 20090901
  2. NAPROXEN [Suspect]
     Indication: OSTEOARTHRITIS
     Dosage: HIGH DOSE
     Route: 048
     Dates: start: 20090901
  3. BLINDED *NO SUBJECT DRUG [Suspect]
     Indication: OSTEOARTHRITIS
     Dosage: HIGH DOSE
     Route: 048
     Dates: start: 20090901
  4. BLINDED *PLACEBO [Suspect]
     Indication: OSTEOARTHRITIS
     Dosage: HIGH DOSE
     Route: 048
     Dates: start: 20090901
  5. BLINDED CELECOXIB [Suspect]
     Indication: OSTEOARTHRITIS
     Dosage: HIGH DOSE
     Route: 048
     Dates: start: 20090901
  6. IBUPROFEN [Suspect]
     Dosage: HIGH DOSE
     Route: 048
     Dates: start: 20090901
  7. NAPROXEN [Suspect]
     Dosage: HIGH DOSE
     Route: 048
     Dates: start: 20090901
  8. IBUPROFEN [Suspect]
     Indication: RHEUMATOID ARTHRITIS
     Dosage: LOW DOSE
     Route: 048
     Dates: start: 20080717, end: 20090310
  9. NAPROXEN [Suspect]
     Indication: RHEUMATOID ARTHRITIS
     Dosage: LOW DOSE
     Route: 048
     Dates: start: 20080717, end: 20090310
  10. BLINDED *NO SUBJECT DRUG [Suspect]
     Indication: RHEUMATOID ARTHRITIS
     Dosage: LOW DOSE
     Route: 048
     Dates: start: 20080717, end: 20090310
  11. BLINDED *PLACEBO [Suspect]
     Indication: RHEUMATOID ARTHRITIS
     Dosage: LOW DOSE
     Route: 048
     Dates: start: 20080717, end: 20090310
  12. BLINDED CELECOXIB [Suspect]
     Indication: RHEUMATOID ARTHRITIS
     Dosage: LOW DOSE
     Route: 048
     Dates: start: 20080717, end: 20090310
  13. IBUPROFEN [Suspect]
     Dosage: LOW DOSE
     Route: 048
     Dates: start: 20080717, end: 20090310
  14. NAPROXEN [Suspect]
     Dosage: LOW DOSE
     Route: 048
     Dates: start: 20080717, end: 20090310
  15. IBUPROFEN [Suspect]
     Dosage: HIGH DOSE
     Route: 048
     Dates: start: 20090311, end: 20090319
  16. NAPROXEN [Suspect]
     Dosage: HIGH DOSE
     Route: 048
     Dates: start: 20090311, end: 20090319
  17. BLINDED *NO SUBJECT DRUG [Suspect]
     Dosage: HIGH DOSE
     Route: 048
     Dates: start: 20090311, end: 20090319
  18. BLINDED *PLACEBO [Suspect]
     Dosage: HIGH DOSE
     Route: 048
     Dates: start: 20090311, end: 20090319
  19. BLINDED CELECOXIB [Suspect]
     Dosage: HIGH DOSE
     Route: 048
     Dates: start: 20090311, end: 20090319
  20. IBUPROFEN [Suspect]
     Dosage: HIGH DOSE
     Route: 048
     Dates: start: 20090311, end: 20090319
  21. NAPROXEN [Suspect]
     Dosage: HIGH DOSE
     Route: 048
     Dates: start: 20090311, end: 20090319
  22. IBUPROFEN [Suspect]
     Dosage: HIGH DOSE
     Route: 048
     Dates: start: 20090326, end: 20090420
  23. NAPROXEN [Suspect]
     Dosage: HIGH DOSE
     Route: 048
     Dates: start: 20090326, end: 20090420
  24. BLINDED *NO SUBJECT DRUG [Suspect]
     Dosage: HIGH DOSE
     Route: 048
     Dates: start: 20090326, end: 20090420
  25. BLINDED *PLACEBO [Suspect]
     Dosage: HIGH DOSE
     Route: 048
     Dates: start: 20090326, end: 20090420
  26. BLINDED CELECOXIB [Suspect]
     Dosage: HIGH DOSE
     Route: 048
     Dates: start: 20090326, end: 20090420
  27. IBUPROFEN [Suspect]
     Dosage: HIGH DOSE
     Route: 048
     Dates: start: 20090326, end: 20090420
  28. NAPROXEN [Suspect]
     Dosage: HIGH DOSE
     Route: 048
     Dates: start: 20090326, end: 20090420
  29. IBUPROFEN [Suspect]
     Dosage: HIGH DOSE
     Route: 048
     Dates: start: 20090430, end: 20090804
  30. NAPROXEN [Suspect]
     Dosage: HIGH DOSE
     Route: 048
     Dates: start: 20090430, end: 20090804
  31. BLINDED *NO SUBJECT DRUG [Suspect]
     Dosage: HIGH DOSE
     Route: 048
     Dates: start: 20090430, end: 20090804
  32. BLINDED *PLACEBO [Suspect]
     Dosage: HIGH DOSE
     Route: 048
     Dates: start: 20090430, end: 20090804
  33. BLINDED CELECOXIB [Suspect]
     Dosage: HIGH DOSE
     Route: 048
     Dates: start: 20090430, end: 20090804
  34. IBUPROFEN [Suspect]
     Dosage: HIGH DOSE
     Route: 048
     Dates: start: 20090430, end: 20090804
  35. NAPROXEN [Suspect]
     Dosage: HIGH DOSE
     Route: 048
     Dates: start: 20090430, end: 20090804
  36. NEXIUM [Concomitant]
     Indication: PROPHYLAXIS
     Dosage: 20 MG, 1X/DAY
     Route: 048
     Dates: start: 20080717
  37. ASPIRIN [Concomitant]
     Dosage: UNK
     Route: 048
     Dates: start: 20080201
  38. TYLENOL W/ CODEINE NO. 3 [Concomitant]
     Dosage: UNK
     Route: 048
     Dates: start: 20070915
  39. METOPROLOL [Concomitant]
     Dosage: UNK
     Route: 048
     Dates: start: 20080616
  40. IMDUR [Concomitant]
     Dosage: UNK
     Route: 048
     Dates: start: 20080313
  41. SIMVASTATIN [Concomitant]
     Dosage: UNK
     Route: 048
     Dates: start: 20080312
  42. NITROGLYCERIN [Concomitant]
     Dosage: UNK
     Route: 048
     Dates: start: 20070806
  43. LISINOPRIL [Concomitant]
     Dosage: UNK
     Route: 048
     Dates: start: 20080326
  44. FERROUS SULFATE [Concomitant]
     Dosage: UNK
     Route: 048
     Dates: start: 20090420

REACTIONS (1)
  - CORONARY ARTERY STENOSIS [None]
